FAERS Safety Report 24254296 (Version 2)
Quarter: 2024Q4

REPORT INFORMATION
  Report Type: Report from Study
  Country: US (occurrence: US)
  Receive Date: 20240827
  Receipt Date: 20241008
  Transmission Date: 20250114
  Serious: Yes (Hospitalization, Other)
  Sender: SUNOVION
  Company Number: US-SUMITOMO PHARMA SWITZERLAND GMBH-2024SPA001332

PATIENT

DRUGS (2)
  1. ORGOVYX [Suspect]
     Active Substance: RELUGOLIX
     Indication: Prostate cancer
     Dosage: 120 MG, QD
     Route: 048
     Dates: start: 20240611
  2. ABIRATERONE [Concomitant]
     Active Substance: ABIRATERONE
     Dosage: UNK
     Route: 065

REACTIONS (3)
  - Cystitis noninfective [Unknown]
  - Metastases to bone [Unknown]
  - Incorrect dose administered [Unknown]
